FAERS Safety Report 23308130 (Version 1)
Quarter: 2023Q4

REPORT INFORMATION
  Report Type: Spontaneous
  Country: US (occurrence: US)
  Receive Date: 20231218
  Receipt Date: 20231218
  Transmission Date: 20240110
  Serious: Yes (Death)
  Sender: FDA-Public Use
  Company Number: US-PERRIGO-23US014500

PATIENT
  Age: 67 Year
  Sex: Male

DRUGS (5)
  1. ACETAMINOPHEN [Suspect]
     Active Substance: ACETAMINOPHEN
     Indication: Suspected suicide
     Dosage: UNK
     Route: 048
  2. POTASSIUM [Suspect]
     Active Substance: POTASSIUM
     Indication: Suspected suicide
     Dosage: UNK
     Route: 048
  3. PROPRANOLOL [Suspect]
     Active Substance: PROPRANOLOL HYDROCHLORIDE
     Indication: Suspected suicide
     Dosage: UNK
     Route: 048
  4. PREGABALIN [Suspect]
     Active Substance: PREGABALIN
     Indication: Suspected suicide
     Dosage: UNK
     Route: 048
  5. MONTELUKAST [Suspect]
     Active Substance: MONTELUKAST SODIUM
     Indication: Suspected suicide
     Dosage: UNK
     Route: 048

REACTIONS (2)
  - Exposure to toxic agent [Fatal]
  - Completed suicide [Fatal]

NARRATIVE: CASE EVENT DATE: 20220101
